FAERS Safety Report 8103890-4 (Version None)
Quarter: 2012Q1

REPORT INFORMATION
  Report Type: 
  Country: None (occurrence: None)
  Receive Date: 20120201
  Receipt Date: 20120127
  Transmission Date: 20120608
  Serious: Yes (Hospitalization)
  Sender: FDA-Public Use
  Company Number: FR-PFIZER INC-K200900215

PATIENT
  Age: 85 Year
  Sex: Female

DRUGS (5)
  1. HEXAL [Concomitant]
     Indication: ANGIOPATHY
     Dosage: 100 MG, UNK
     Route: 048
     Dates: start: 20060101, end: 20080808
  2. FOSAMAX [Concomitant]
     Indication: OSTEOPOROSIS
     Dosage: 70 MG, UNK
     Dates: start: 20080401
  3. VALIUM [Concomitant]
     Indication: OSTEOPOROSIS
     Dosage: 500 MG, UNK
     Route: 048
  4. ALTACE [Suspect]
     Indication: HYPERTENSION
     Dosage: 5 MG, 1X/DAY
     Route: 048
     Dates: start: 20070101
  5. METOPROLOL TARTRATE AND HYDROCHLOROTHIAZIDE [Suspect]
     Indication: HYPERTENSION
     Dosage: 1 DF, 1X/DAY
     Route: 048
     Dates: start: 20050101, end: 20080808

REACTIONS (8)
  - NAUSEA [None]
  - TINNITUS [None]
  - FALL [None]
  - FEELING ABNORMAL [None]
  - DIZZINESS [None]
  - HYPONATRAEMIA [None]
  - PRESYNCOPE [None]
  - ASTHENIA [None]
